FAERS Safety Report 8099938-6 (Version None)
Quarter: 2012Q1

REPORT INFORMATION
  Report Type: 
  Country: None (occurrence: None)
  Receive Date: 20120129
  Receipt Date: 20111128
  Transmission Date: 20120608
  Serious: No
  Sender: FDA-Public Use
  Company Number: US-ABBOTT-11P-163-0878403-00

PATIENT
  Age: 66 Year
  Sex: Female

DRUGS (4)
  1. GABAPENTIN [Concomitant]
     Indication: NEUROPATHY PERIPHERAL
     Dosage: 100MG QAM, 200 MG NOON, 500MG QHS
  2. LORAZEPAM [Concomitant]
     Indication: INSOMNIA
     Dosage: QHS
  3. VITAMIN TAB [Concomitant]
     Indication: PRODUCT USED FOR UNKNOWN INDICATION
  4. HUMIRA [Suspect]
     Indication: CROHN'S DISEASE
     Dates: start: 20110914

REACTIONS (3)
  - DRUG INEFFECTIVE [None]
  - INJECTION SITE PRURITUS [None]
  - INJECTION SITE ERYTHEMA [None]
